FAERS Safety Report 4878164-5 (Version None)
Quarter: 2005Q4

REPORT INFORMATION
  Report Type: 
  Country: None (occurrence: None)
  Receive Date: 20051209
  Receipt Date: 20050719
  Transmission Date: 20060501
  Serious: Yes (Death)
  Sender: FDA-Public Use
  Company Number: USA-2005-0020800

PATIENT
  Age: 40 Year
  Sex: Female
  Weight: 125.9 kg

DRUGS (9)
  1. OXYCONTIN [Suspect]
     Indication: PAIN
     Dosage: 40 MG, TID, UNKNOWN
  2. OXYMORPHONE HYDROCHLORIDE [Suspect]
  3. NORTRIPTYLINE HCL [Suspect]
     Dosage: 75 MG
  4. NORTRIPTYLINE (NORTRIPTYLINE) [Suspect]
  5. ETHANOL (ETHANOL) [Suspect]
  6. DIPHENHYDRAMINE HCL [Suspect]
  7. CEPHALEXIN [Concomitant]
  8. NEURONTIN [Concomitant]
  9. SOMA [Concomitant]

REACTIONS (2)
  - INTENTIONAL OVERDOSE [None]
  - MEDICATION ERROR [None]
